FAERS Safety Report 9393314 (Version 1)
Quarter: 2013Q3

REPORT INFORMATION
  Report Type: Spontaneous
  Country: US (occurrence: US)
  Receive Date: 20130710
  Receipt Date: 20130710
  Transmission Date: 20140515
  Serious: No
  Sender: FDA-Public Use
  Company Number: US-B.I. PHARMACEUTICALS,INC./RIDGEFIELD-2013-BI-18315BP

PATIENT
  Age: 70 Year
  Sex: Male
  Weight: 104 kg

DRUGS (4)
  1. PRADAXA [Suspect]
     Indication: ATRIAL FIBRILLATION
     Dosage: 300 MG
     Route: 048
     Dates: start: 20130617
  2. HYZAAR [Concomitant]
     Indication: HYPERTENSION
     Dates: start: 2003
  3. METFORMIN [Concomitant]
     Indication: DIABETES MELLITUS
     Dates: start: 2003
  4. ZIAC [Concomitant]
     Indication: HYPERTENSION
     Dates: start: 2003

REACTIONS (1)
  - Wound secretion [Not Recovered/Not Resolved]
